FAERS Safety Report 16244597 (Version 1)
Quarter: 2019Q2

REPORT INFORMATION
  Report Type: Spontaneous
  Country: DK (occurrence: DK)
  Receive Date: 20190426
  Receipt Date: 20190426
  Transmission Date: 20190711
  Serious: Yes (Hospitalization)
  Sender: FDA-Public Use
  Company Number: DK-MYLANLABS-2019M1038246

PATIENT
  Age: 61 Year
  Sex: Male

DRUGS (6)
  1. CIALIS [Concomitant]
     Active Substance: TADALAFIL
     Indication: ERECTILE DYSFUNCTION
     Dosage: STYRKE: 10 MG.  DOSIS: 1 TABLET EFTER BEHOV 30 MINUTTER F?R VIRKNING ?NSKES
     Route: 048
     Dates: start: 20160906
  2. ENALAPRIL [Concomitant]
     Active Substance: ENALAPRIL
     Indication: HYPERTENSION
     Dosage: STYRKE: 20 MG.
     Route: 048
     Dates: start: 20130425
  3. HJERTEMAGNYL                       /00002701/ [Concomitant]
     Active Substance: ASPIRIN
     Indication: ANTICOAGULANT THERAPY
     Dosage: STYRKE: 75 MG.
     Route: 048
     Dates: start: 20130425
  4. PAMOL [Concomitant]
     Active Substance: ACETAMINOPHEN
     Indication: PAIN
     Dosage: STYRKE: 500 MG.
     Route: 048
     Dates: start: 20181024, end: 20181103
  5. BRUFEN RETARD [Suspect]
     Active Substance: IBUPROFEN
     Indication: PAIN
     Dosage: STYRKE: 800 MG.
     Route: 048
     Dates: start: 20181024, end: 20181103
  6. LANSOPRAZOLE. [Concomitant]
     Active Substance: LANSOPRAZOLE
     Indication: GASTROOESOPHAGEAL REFLUX DISEASE
     Dosage: STYRKE: 30 MG. DOSIS: 1 KAPSEL EFTER BEHOV, H?JST 1 GANG DAGLIGT.
     Route: 048
     Dates: start: 20151123, end: 20181103

REACTIONS (5)
  - Oesophageal dilatation [Unknown]
  - Oesophagitis [Unknown]
  - Impaired gastric emptying [Unknown]
  - Oesophageal haemorrhage [Unknown]
  - Haematemesis [Recovered/Resolved]

NARRATIVE: CASE EVENT DATE: 201811
